FAERS Safety Report 11936998 (Version 1)
Quarter: 2016Q1

REPORT INFORMATION
  Report Type: Spontaneous
  Country: US (occurrence: US)
  Receive Date: 20160121
  Receipt Date: 20160121
  Transmission Date: 20160526
  Serious: No
  Sender: FDA-Public Use
  Company Number: US-PFIZER INC-2016033542

PATIENT
  Age: 47 Year
  Sex: Female
  Weight: 92.99 kg

DRUGS (1)
  1. LYRICA [Suspect]
     Active Substance: PREGABALIN
     Indication: NEUROPATHY PERIPHERAL
     Dosage: 450 MG TOTAL A DAY
     Route: 048
     Dates: start: 201511

REACTIONS (3)
  - Pain in extremity [Unknown]
  - Drug ineffective for unapproved indication [Not Recovered/Not Resolved]
  - Weight increased [Unknown]

NARRATIVE: CASE EVENT DATE: 201511
